FAERS Safety Report 6128275-1 (Version None)
Quarter: 2009Q1

REPORT INFORMATION
  Report Type: 
  Country: None (occurrence: None)
  Receive Date: 20090323
  Receipt Date: 20090313
  Transmission Date: 20090719
  Serious: Yes (Other)
  Sender: FDA-Public Use
  Company Number: US-ASTRAZENECA-2009AC00860

PATIENT
  Age: 26 Year
  Sex: Male

DRUGS (3)
  1. PROPOFOL [Suspect]
     Indication: INDUCTION OF ANAESTHESIA
  2. ONDANSETRON [Suspect]
     Indication: PROPHYLAXIS
  3. BUPIVACAINE [Concomitant]
     Dosage: 5 CC OF  0.25%

REACTIONS (9)
  - DIAPHRAGMATIC DISORDER [None]
  - DYSKINESIA [None]
  - DYSTONIA [None]
  - INTENTION TREMOR [None]
  - LARYNGOSPASM [None]
  - MYOCLONUS [None]
  - OPISTHOTONUS [None]
  - OROPHARYNGEAL SPASM [None]
  - SPEECH DISORDER [None]
